FAERS Safety Report 8208015-2 (Version None)
Quarter: 2012Q1

REPORT INFORMATION
  Report Type: 
  Country: None (occurrence: None)
  Receive Date: 20120227
  Receipt Date: 20111121
  Transmission Date: 20120608
  Serious: No
  Sender: FDA-Public Use
  Company Number: 339994

PATIENT
  Age: 81 Year
  Sex: Female

DRUGS (2)
  1. VICTOZA [Suspect]
     Indication: TYPE 2 DIABETES MELLITUS
     Dosage: ,  SUBCUTANEOUS
     Route: 058
  2. LEVEMIR [Suspect]
     Indication: TYPE 2 DIABETES MELLITUS
     Dosage: SUBCUTANEOUS
     Route: 058

REACTIONS (7)
  - PRURITUS [None]
  - SWELLING [None]
  - INJECTION [None]
  - INJECTION SITE ERYTHEMA [None]
  - INJECTION SITE SWELLING [None]
  - ERYTHEMA [None]
  - INJECTION SITE PRURITUS [None]
